FAERS Safety Report 25007363 (Version 1)
Quarter: 2025Q1

REPORT INFORMATION
  Report Type: Spontaneous
  Country: DE (occurrence: DE)
  Receive Date: 20250225
  Receipt Date: 20250225
  Transmission Date: 20250408
  Serious: Yes (Hospitalization, Other)
  Sender: SANDOZ
  Company Number: DE-SZ09-GXKR2011DE02256

PATIENT
  Age: 82 Year
  Sex: Female

DRUGS (13)
  1. EXELON [Suspect]
     Active Substance: RIVASTIGMINE TARTRATE
     Indication: Product used for unknown indication
     Route: 062
  2. MELPERONE [Suspect]
     Active Substance: MELPERONE
     Indication: Product used for unknown indication
     Dosage: 75 MG, QD (DAILY DOSE: 1 MG MILLIGRAM(S) EVERY DAY)
     Route: 048
     Dates: start: 20100715
  3. NOVODIGAL (.BETA.-ACETYLDIGOXIN) [Suspect]
     Active Substance: .BETA.-ACETYLDIGOXIN
     Indication: Product used for unknown indication
     Dosage: 0.2 MG, QD (DAILY DOSE: 1 MG MILLIGRAM(S) EVERY DAY)
     Route: 048
  4. TREVILOR RETARD [Suspect]
     Active Substance: VENLAFAXINE HYDROCHLORIDE
     Indication: Product used for unknown indication
     Dosage: 37.5 MG, QD (DAILY DOSE: 1 MG MILLIGRAM(S) EVERY DAY)
     Route: 048
     Dates: start: 20100824, end: 20100831
  5. TREVILOR RETARD [Suspect]
     Active Substance: VENLAFAXINE HYDROCHLORIDE
     Indication: Product used for unknown indication
     Dosage: 75 MG, QD (DAILY DOSE: 1 MG MILLIGRAM(S) EVERY DAY)
     Route: 048
     Dates: start: 20100901, end: 20100903
  6. LOSARTAN [Concomitant]
     Active Substance: LOSARTAN
     Indication: Product used for unknown indication
     Dosage: 50 MG, QD (DAILY DOSE: 1 MG MILLIGRAM(S) EVERY DAY)
     Route: 048
  7. RISPERDAL [Concomitant]
     Active Substance: RISPERIDONE
     Dosage: 1 MG, QD
     Route: 048
     Dates: start: 20100905
  8. RISPERDAL [Concomitant]
     Active Substance: RISPERIDONE
     Indication: Product used for unknown indication
     Dosage: 1 MG, QD (DAILY DOSE: 1 MG MILLIGRAM(S) EVERY DAY)
     Route: 048
     Dates: start: 20100720, end: 20100902
  9. RISPERDAL [Concomitant]
     Active Substance: RISPERIDONE
     Indication: Product used for unknown indication
     Dosage: 1 MG, QD (DAILY DOSE: 1 MG MILLIGRAM(S) EVERY DAY)
     Route: 048
     Dates: start: 20100905
  10. RISPERDAL [Concomitant]
     Active Substance: RISPERIDONE
     Indication: Product used for unknown indication
     Dosage: 2 MG, QD (DAILY DOSE: 1 MG MILLIGRAM(S) EVERY DAY)
     Route: 048
     Dates: start: 20100903, end: 20100904
  11. RISPERDAL [Concomitant]
     Active Substance: RISPERIDONE
     Dosage: 2 MG, QD
     Route: 048
     Dates: start: 20100903, end: 20100904
  12. SPIRIVA [Concomitant]
     Active Substance: TIOTROPIUM BROMIDE MONOHYDRATE
     Indication: Product used for unknown indication
     Dosage: 1 MG, QD (DAILY DOSE: 1 MG MILLIGRAM(S) EVERY DAY)
     Route: 055
  13. TIOTROPIUM BROMIDE [Concomitant]
     Active Substance: TIOTROPIUM BROMIDE
     Indication: Product used for unknown indication
     Dosage: 1 DF, QD
     Route: 055

REACTIONS (6)
  - Dementia Alzheimer^s type [Unknown]
  - Delirium [Recovered/Resolved]
  - Sleep disorder [Unknown]
  - Laboratory test abnormal [Unknown]
  - Restlessness [Unknown]
  - Depression [Unknown]

NARRATIVE: CASE EVENT DATE: 20100903
